FAERS Safety Report 23834726 (Version 1)
Quarter: 2024Q2

REPORT INFORMATION
  Report Type: Spontaneous
  Country: US (occurrence: US)
  Receive Date: 20240509
  Receipt Date: 20240509
  Transmission Date: 20240716
  Serious: Yes (Other)
  Sender: FDA-Public Use
  Company Number: None

PATIENT

DRUGS (1)
  1. SERTRALINE HYDROCHLORIDE [Suspect]
     Active Substance: SERTRALINE HYDROCHLORIDE
     Indication: Product used for unknown indication
     Dosage: 30 COUNT?STARTED IN JANUARY

REACTIONS (5)
  - Diarrhoea haemorrhagic [Unknown]
  - Abdominal discomfort [Unknown]
  - Gluten sensitivity [Unknown]
  - Constipation [Unknown]
  - Product substitution issue [Unknown]
